FAERS Safety Report 7210354-9 (Version None)
Quarter: 2011Q1

REPORT INFORMATION
  Report Type: 
  Country: None (occurrence: None)
  Receive Date: 20110103
  Receipt Date: 20110103
  Transmission Date: 20110831
  Serious: Yes (Disabling, Other)
  Sender: FDA-Public Use
  Company Number: None

PATIENT
  Sex: Male
  Weight: 96.1626 kg

DRUGS (2)
  1. RISPERDAL CONSTA [Suspect]
  2. ZYPREXA [Suspect]

REACTIONS (3)
  - TARDIVE DYSKINESIA [None]
  - SOCIAL AVOIDANT BEHAVIOUR [None]
  - QUALITY OF LIFE DECREASED [None]
